FAERS Safety Report 9610332 (Version 1)
Quarter: 2013Q4

REPORT INFORMATION
  Report Type: Spontaneous
  Country: US (occurrence: US)
  Receive Date: 20131009
  Receipt Date: 20131009
  Transmission Date: 20140711
  Serious: No
  Sender: FDA-Public Use
  Company Number: US-PURDUE-USA-2012-0096568

PATIENT
  Age: 92 Year
  Sex: Female

DRUGS (1)
  1. BUTRANS [Suspect]
     Indication: BACK PAIN
     Dosage: 5 MCG, UNK
     Route: 062
     Dates: start: 20121128

REACTIONS (2)
  - Drug ineffective [Not Recovered/Not Resolved]
  - Dizziness postural [Not Recovered/Not Resolved]
